FAERS Safety Report 12544464 (Version 4)
Quarter: 2017Q1

REPORT INFORMATION
  Report Type: Spontaneous
  Country: US (occurrence: US)
  Receive Date: 20160711
  Receipt Date: 20170118
  Transmission Date: 20170428
  Serious: No
  Sender: FDA-Public Use
  Company Number: US-PFIZER INC-2016327000

PATIENT
  Age: 75 Year
  Sex: Female

DRUGS (23)
  1. ALLEGRA [Concomitant]
     Active Substance: FEXOFENADINE HYDROCHLORIDE
     Indication: HYPERSENSITIVITY
     Dosage: 180 MG (1 TABLET), AS NEEDED DAILY
     Dates: start: 20110609
  2. FISH OIL [Concomitant]
     Active Substance: FISH OIL
     Dosage: 1200 MG (1 CAPSULE), DAILY
     Dates: start: 20100427
  3. BIOTIN [Concomitant]
     Active Substance: BIOTIN
     Dosage: 5000 UG, DAILY
     Dates: start: 20100427
  4. LEXAPRO [Concomitant]
     Active Substance: ESCITALOPRAM OXALATE
     Dosage: 10 MG, 1X/DAY (20 MG TABLET TAKE1/2  TABLET BY MOUTH AT BEDTIME)
     Route: 048
     Dates: start: 20151112
  5. DESYREL [Concomitant]
     Active Substance: TRAZODONE HYDROCHLORIDE
     Dosage: 150 MG, 1X/DAY (NIGHTLY)
     Route: 048
     Dates: start: 20151215
  6. SUTENT [Suspect]
     Active Substance: SUNITINIB MALATE
     Dosage: 12.5 MG, CYCLIC (DAILY FOR 4 WEEKS OFF, FOR 2 WEEKS OFF)
     Route: 048
     Dates: start: 20160715
  7. PATANOL [Concomitant]
     Active Substance: OLOPATADINE HYDROCHLORIDE
     Indication: HYPERSENSITIVITY
     Dosage: 0.1 %, 1 DROP INTO BOTH EYES TWO TIMES DAILY AS NEEDED
     Dates: start: 20130603
  8. SUTENT [Suspect]
     Active Substance: SUNITINIB MALATE
     Dosage: 12.5 MG, DAILY
     Route: 048
     Dates: start: 20160923
  9. SUTENT [Suspect]
     Active Substance: SUNITINIB MALATE
     Dosage: 12.5 MG, DAILY
     Route: 048
     Dates: start: 20170109
  10. FLONASE [Concomitant]
     Active Substance: FLUTICASONE PROPIONATE
     Dosage: 50 MCG/ACT DAILY AS NEEDED
     Route: 045
     Dates: start: 20120927
  11. ZOFRAN [Concomitant]
     Active Substance: ONDANSETRON HYDROCHLORIDE
     Indication: NAUSEA
     Dosage: 8 MG, 3 TIMES DAILY AS NEEDED
     Dates: start: 20160212
  12. COMPAZINE [Concomitant]
     Active Substance: PROCHLORPERAZINE MALEATE
     Indication: NAUSEA
     Dosage: 10 MG, 4 TIMES DAILY AS NEEDED (EVERY 6 HOURS)
     Route: 048
     Dates: start: 20160520
  13. SUTENT [Suspect]
     Active Substance: SUNITINIB MALATE
     Indication: GASTROINTESTINAL STROMAL TUMOUR
     Dosage: 50 MG, CYCLIC (ONCE DAILY FOR 4 WEEKS ON TREATMENT FOLLOWED BY 2 WEEKS OFF TREATMENT)
     Route: 048
     Dates: start: 20160520, end: 20160617
  14. SUTENT [Suspect]
     Active Substance: SUNITINIB MALATE
     Dosage: 25 MG, CYCLIC (DAILY FOR 4 WEEKS OFF, FOR 2 WEEKS OFF)
     Route: 048
     Dates: start: 20160715
  15. SUTENT [Suspect]
     Active Substance: SUNITINIB MALATE
     Dosage: 25 MG, DAILY
     Route: 048
     Dates: start: 20160923
  16. SUTENT [Suspect]
     Active Substance: SUNITINIB MALATE
     Dosage: 25 MG, DAILY
     Route: 048
     Dates: start: 20170109
  17. CALTRATE 600+D [Concomitant]
     Dosage: DAILY AS NEEDED
     Route: 048
     Dates: start: 20100427
  18. VITAMIN B12 [Concomitant]
     Active Substance: CYANOCOBALAMIN
     Dosage: 2000 UG, DAILY
     Route: 048
     Dates: start: 20100427
  19. MEVACOR [Concomitant]
     Active Substance: LOVASTATIN
     Dosage: 20 MG, DAILY
     Route: 048
     Dates: start: 20160407
  20. MAG-OX [Concomitant]
     Active Substance: MAGNESIUM OXIDE
     Indication: MUSCLE SPASMS
     Dosage: 400 MG, DAILY
     Route: 048
     Dates: start: 20160407
  21. NEXIUM [Concomitant]
     Active Substance: ESOMEPRAZOLE MAGNESIUM
     Dosage: 40 MG (1 CAPSULE), DAILY (BEFORE BREAKFAST)
     Route: 048
     Dates: start: 20160531
  22. COZAAR [Concomitant]
     Active Substance: LOSARTAN POTASSIUM
     Dosage: 50 MG, DAILY
     Route: 048
     Dates: start: 20160407
  23. CALCIUM/MELATONIN/PYRIDOXINE HYDROCHLORIDE [Concomitant]
     Indication: SLEEP DISORDER
     Dosage: 3 MG, NIGHTLY AS NEEDED
     Route: 048
     Dates: start: 20160407

REACTIONS (4)
  - Neoplasm progression [Unknown]
  - Fatigue [Recovered/Resolved]
  - Stomatitis [Recovered/Resolved]
  - Burning sensation [Recovered/Resolved]

NARRATIVE: CASE EVENT DATE: 20160526
